FAERS Safety Report 6719196-1 (Version None)
Quarter: 2010Q2

REPORT INFORMATION
  Report Type: 
  Country: None (occurrence: None)
  Receive Date: 20100511
  Receipt Date: 20100507
  Transmission Date: 20101027
  Serious: No
  Sender: FDA-Public Use
  Company Number: US-CEPHALON-2010002654

PATIENT
  Sex: Female

DRUGS (4)
  1. FENTORA [Suspect]
     Indication: COMPLEX REGIONAL PAIN SYNDROME
     Route: 002
     Dates: start: 20030101
  2. FENTORA [Suspect]
     Route: 002
     Dates: start: 20030101
  3. ACTIQ [Suspect]
     Indication: COMPLEX REGIONAL PAIN SYNDROME
     Route: 002
     Dates: start: 20030101
  4. FENTANYL [Suspect]
     Route: 062

REACTIONS (1)
  - DRUG PRESCRIBING ERROR [None]
